FAERS Safety Report 9628930 (Version 2)
Quarter: 2013Q4

REPORT INFORMATION
  Report Type: Spontaneous
  Country: NL (occurrence: NL)
  Receive Date: 20131017
  Receipt Date: 20131017
  Transmission Date: 20140711
  Serious: No
  Sender: FDA-Public Use
  Company Number: PHHY2013NL097165

PATIENT
  Sex: Male

DRUGS (4)
  1. TASIGNA [Suspect]
     Indication: CHRONIC MYELOID LEUKAEMIA
     Dosage: 800 MG, DAILY
     Route: 048
     Dates: start: 20130828, end: 20130904
  2. TASIGNA [Suspect]
     Dosage: 800 MG, DAILY
     Route: 048
     Dates: start: 20130908, end: 20130908
  3. CYCLOSPORINE [Concomitant]
     Dosage: 100 MG, BID
     Route: 048
  4. PREDNISONE [Concomitant]
     Dosage: 10 MG, QD

REACTIONS (1)
  - Flank pain [Recovered/Resolved]
